FAERS Safety Report 16120577 (Version 2)
Quarter: 2019Q1

REPORT INFORMATION
  Report Type: Spontaneous
  Country: JP (occurrence: JP)
  Receive Date: 20190326
  Receipt Date: 20190330
  Transmission Date: 20190418
  Serious: Yes (Other)
  Sender: FDA-Public Use
  Company Number: JP-UCBSA-2019011805

PATIENT
  Age: 70 Year
  Sex: Male

DRUGS (1)
  1. E KEPPRA [Suspect]
     Active Substance: LEVETIRACETAM
     Indication: EPILEPSY
     Dosage: 1500 MG, ONCE DAILY (QD)
     Route: 041
     Dates: start: 20190220, end: 20190313

REACTIONS (1)
  - Skin erosion [Recovering/Resolving]

NARRATIVE: CASE EVENT DATE: 20190313
